FAERS Safety Report 20515112 (Version 1)
Quarter: 2022Q1

REPORT INFORMATION
  Report Type: Spontaneous
  Country: CN (occurrence: CN)
  Receive Date: 20220224
  Receipt Date: 20220224
  Transmission Date: 20220423
  Serious: Yes (Other)
  Sender: FDA-Public Use
  Company Number: CN-KYOWAKIRIN-2022BKK002142

PATIENT

DRUGS (2)
  1. TOREMIFENE [Suspect]
     Active Substance: TOREMIFENE
     Indication: Invasive lobular breast carcinoma
     Dosage: UNK
     Route: 048
     Dates: start: 20190112, end: 20190423
  2. TOREMIFENE [Suspect]
     Active Substance: TOREMIFENE
     Indication: Metastatic lymphoma

REACTIONS (1)
  - Breast cancer metastatic [Recovering/Resolving]

NARRATIVE: CASE EVENT DATE: 20190423
